FAERS Safety Report 7456635-5 (Version None)
Quarter: 2011Q2

REPORT INFORMATION
  Report Type: 
  Country: None (occurrence: None)
  Receive Date: 20110503
  Receipt Date: 20110425
  Transmission Date: 20111010
  Serious: Yes (Hospitalization, Other)
  Sender: FDA-Public Use
  Company Number: US-GENZYME-THYM-1001806

PATIENT
  Sex: Female
  Weight: 82.54 kg

DRUGS (8)
  1. VITAMIN E [Concomitant]
     Indication: VITAMIN SUPPLEMENTATION
     Dosage: 200 IU, UNK
  2. STRATTERA [Concomitant]
     Indication: ATTENTION DEFICIT/HYPERACTIVITY DISORDER
     Dosage: 80 MG, QD
  3. FLAX SEED OIL [Concomitant]
     Indication: VITAMIN SUPPLEMENTATION
  4. CALCIUM MAGNESIUM [Concomitant]
     Indication: VITAMIN SUPPLEMENTATION
  5. THYMOGLOBULIN [Suspect]
     Indication: TYPE 1 DIABETES MELLITUS
     Dosage: 43 MG, QD
     Route: 042
     Dates: start: 20100809, end: 20100809
  6. THYMOGLOBULIN [Suspect]
     Dosage: 171 MG, QD
     Route: 042
     Dates: start: 20100810, end: 20100812
  7. MULTI-VIT [Concomitant]
     Indication: VITAMIN SUPPLEMENTATION
  8. VITAMIN C [Concomitant]
     Indication: VITAMIN SUPPLEMENTATION

REACTIONS (14)
  - TACHYCARDIA [None]
  - PALPITATIONS [None]
  - FIBRIN D DIMER INCREASED [None]
  - CHEST DISCOMFORT [None]
  - MALAISE [None]
  - LYMPHOPENIA [None]
  - LIVER FUNCTION TEST ABNORMAL [None]
  - CYTOKINE RELEASE SYNDROME [None]
  - MYALGIA [None]
  - VIRAL INFECTION [None]
  - PRURITUS [None]
  - HEADACHE [None]
  - SERUM SICKNESS [None]
  - CD4 LYMPHOCYTES DECREASED [None]
